FAERS Safety Report 20769584 (Version 2)
Quarter: 2022Q2

REPORT INFORMATION
  Report Type: Spontaneous
  Country: CH (occurrence: CH)
  Receive Date: 20220429
  Receipt Date: 20220513
  Transmission Date: 20220720
  Serious: No
  Sender: FDA-Public Use
  Company Number: CH-MYLANLABS-2022M1030771

PATIENT
  Age: 2 Year
  Sex: Female

DRUGS (3)
  1. EPIPEN JR [Suspect]
     Active Substance: EPINEPHRINE
     Indication: Food allergy
     Dosage: UNK
     Route: 030
  2. EPIPEN JR [Suspect]
     Active Substance: EPINEPHRINE
     Indication: Anaphylactic shock
     Dosage: 5.45 PM
     Route: 030
     Dates: start: 20220421
  3. EPIPEN JR [Suspect]
     Active Substance: EPINEPHRINE
     Indication: Dyspnoea

REACTIONS (3)
  - Therapeutic product effect incomplete [Unknown]
  - Needle issue [Unknown]
  - Circumstance or information capable of leading to medication error [Unknown]

NARRATIVE: CASE EVENT DATE: 20220421
